FAERS Safety Report 23687209 (Version 2)
Quarter: 2024Q4

REPORT INFORMATION
  Report Type: Spontaneous
  Country: US (occurrence: US)
  Receive Date: 20240329
  Receipt Date: 20241220
  Transmission Date: 20250115
  Serious: No
  Sender: KYOWA
  Company Number: US-KYOWAKIRIN-2024KK006514

PATIENT

DRUGS (2)
  1. CRYSVITA [Suspect]
     Active Substance: BUROSUMAB-TWZA
     Indication: Hereditary hypophosphataemic rickets
     Dosage: 20 MG, 1X/2 WEEKS
     Route: 058
  2. CRYSVITA [Suspect]
     Active Substance: BUROSUMAB-TWZA
     Indication: Hereditary hypophosphataemic rickets
     Dosage: 30 MG (1 ML), 1X/2 WEEKS
     Route: 058

REACTIONS (2)
  - Tooth infection [Unknown]
  - Dental operation [Unknown]
